FAERS Safety Report 7811071-4 (Version None)
Quarter: 2011Q4

REPORT INFORMATION
  Report Type: 
  Country: None (occurrence: None)
  Receive Date: 20111013
  Receipt Date: 20110930
  Transmission Date: 20120403
  Serious: Yes (Hospitalization)
  Sender: FDA-Public Use
  Company Number: US-BAYER-2011-081883

PATIENT
  Age: 29 Year
  Sex: Female

DRUGS (5)
  1. IBUPROFEN (ADVIL) [Concomitant]
     Dosage: UNK UNK, PRN
  2. AVELOX [Concomitant]
  3. SINGULAIR [Concomitant]
     Dosage: UNK UNK, PRN
  4. YASMIN [Suspect]
     Indication: PRODUCT USED FOR UNKNOWN INDICATION
     Dosage: UNK
     Dates: end: 20090119
  5. ALBUTEROL [Concomitant]
     Dosage: UNK UNK, PRN

REACTIONS (7)
  - INJURY [None]
  - DEEP VEIN THROMBOSIS [None]
  - DYSPNOEA [None]
  - PULMONARY INFARCTION [None]
  - PULMONARY EMBOLISM [None]
  - PAIN [None]
  - PAIN IN EXTREMITY [None]
